FAERS Safety Report 25984336 (Version 3)
Quarter: 2025Q4

REPORT INFORMATION
  Report Type: Spontaneous
  Country: EU (occurrence: EU)
  Receive Date: 20251031
  Receipt Date: 20251209
  Transmission Date: 20260118
  Serious: Yes (Hospitalization, Other)
  Sender: MYLAN
  Company Number: EU-ROCHE-10000401965

PATIENT
  Age: 52 Year
  Sex: Female

DRUGS (28)
  1. PREGABALIN [Suspect]
     Active Substance: PREGABALIN
     Indication: Product used for unknown indication
     Dosage: UNK
  2. PREGABALIN [Suspect]
     Active Substance: PREGABALIN
     Dosage: UNK
     Route: 065
  3. PREGABALIN [Suspect]
     Active Substance: PREGABALIN
     Dosage: UNK
     Route: 065
  4. PREGABALIN [Suspect]
     Active Substance: PREGABALIN
     Dosage: UNK
  5. ZOLPIDEM [Suspect]
     Active Substance: ZOLPIDEM TARTRATE
     Indication: Anxiolytic therapy
     Dosage: LARGE QUANTITY
  6. ZOLPIDEM [Suspect]
     Active Substance: ZOLPIDEM TARTRATE
     Dosage: LARGE QUANTITY
     Route: 048
  7. ZOLPIDEM [Suspect]
     Active Substance: ZOLPIDEM TARTRATE
     Dosage: LARGE QUANTITY
     Route: 048
  8. ZOLPIDEM [Suspect]
     Active Substance: ZOLPIDEM TARTRATE
     Dosage: LARGE QUANTITY
  9. CLONAZEPAM [Suspect]
     Active Substance: CLONAZEPAM
     Indication: Hypotonia
     Dosage: 2 DOSAGE FORM, QD (2 DOSE, 2 TABLET/DAY)
  10. CLONAZEPAM [Suspect]
     Active Substance: CLONAZEPAM
     Dosage: 2 DOSAGE FORM, QD (2 DOSE, 2 TABLET/DAY)
     Route: 048
  11. CLONAZEPAM [Suspect]
     Active Substance: CLONAZEPAM
     Dosage: 2 DOSAGE FORM, QD (2 DOSE, 2 TABLET/DAY)
     Route: 048
  12. CLONAZEPAM [Suspect]
     Active Substance: CLONAZEPAM
     Dosage: 2 DOSAGE FORM, QD (2 DOSE, 2 TABLET/DAY)
  13. VALIUM [Suspect]
     Active Substance: DIAZEPAM
     Indication: Product used for unknown indication
     Dosage: 8 DOSAGE FORM, 1 TOTAL (8 TABLET)
  14. VALIUM [Suspect]
     Active Substance: DIAZEPAM
     Dosage: 8 DOSAGE FORM, 1 TOTAL (8 TABLET)
     Route: 048
  15. VALIUM [Suspect]
     Active Substance: DIAZEPAM
     Dosage: 8 DOSAGE FORM, 1 TOTAL (8 TABLET)
     Route: 048
  16. VALIUM [Suspect]
     Active Substance: DIAZEPAM
     Dosage: 8 DOSAGE FORM, 1 TOTAL (8 TABLET)
  17. COCAINE [Suspect]
     Active Substance: COCAINE
     Indication: Product used for unknown indication
     Dosage: 3/4 GRAMS EVERY DAY   QD
     Dates: start: 2023
  18. COCAINE [Suspect]
     Active Substance: COCAINE
     Dosage: 3/4 GRAMS EVERY DAY   QD
     Route: 065
     Dates: start: 2023
  19. COCAINE [Suspect]
     Active Substance: COCAINE
     Dosage: 3/4 GRAMS EVERY DAY   QD
     Route: 065
     Dates: start: 2023
  20. COCAINE [Suspect]
     Active Substance: COCAINE
     Dosage: 3/4 GRAMS EVERY DAY   QD
     Dates: start: 2023
  21. MIDOMAFETAMINE [Concomitant]
     Active Substance: MIDOMAFETAMINE
     Dosage: UNK
  22. MIDOMAFETAMINE [Concomitant]
     Active Substance: MIDOMAFETAMINE
     Dosage: UNK
     Route: 065
  23. MIDOMAFETAMINE [Concomitant]
     Active Substance: MIDOMAFETAMINE
     Dosage: UNK
     Route: 065
  24. MIDOMAFETAMINE [Concomitant]
     Active Substance: MIDOMAFETAMINE
     Dosage: UNK
  25. HERBALS\TETRAHYDROCANNABINOL UNSPECIFIED [Concomitant]
     Active Substance: HERBALS\TETRAHYDROCANNABINOL UNSPECIFIED
     Dosage: UNK
  26. HERBALS\TETRAHYDROCANNABINOL UNSPECIFIED [Concomitant]
     Active Substance: HERBALS\TETRAHYDROCANNABINOL UNSPECIFIED
     Dosage: UNK
     Route: 065
  27. HERBALS\TETRAHYDROCANNABINOL UNSPECIFIED [Concomitant]
     Active Substance: HERBALS\TETRAHYDROCANNABINOL UNSPECIFIED
     Dosage: UNK
     Route: 065
  28. HERBALS\TETRAHYDROCANNABINOL UNSPECIFIED [Concomitant]
     Active Substance: HERBALS\TETRAHYDROCANNABINOL UNSPECIFIED
     Dosage: UNK

REACTIONS (8)
  - Suicidal ideation [Unknown]
  - Delusion [Not Recovered/Not Resolved]
  - Hallucination, synaesthetic [Not Recovered/Not Resolved]
  - Mydriasis [Recovered/Resolved]
  - Hallucinations, mixed [Not Recovered/Not Resolved]
  - Drug abuse [Unknown]
  - Intentional product misuse [Not Recovered/Not Resolved]
  - Off label use [Unknown]

NARRATIVE: CASE EVENT DATE: 20240908
